FAERS Safety Report 16338946 (Version 2)
Quarter: 2019Q2

REPORT INFORMATION
  Report Type: Spontaneous
  Country: JP (occurrence: JP)
  Receive Date: 20190521
  Receipt Date: 20190613
  Transmission Date: 20190711
  Serious: Yes (Hospitalization, Disabling, Other)
  Sender: FDA-Public Use
  Company Number: PHJP2019JP004350

PATIENT
  Sex: Female
  Weight: 48 kg

DRUGS (8)
  1. SAWACILLIN [Concomitant]
     Active Substance: AMOXICILLIN
     Indication: PRODUCT USED FOR UNKNOWN INDICATION
     Dosage: 750 MG, UNK
     Route: 048
     Dates: start: 20181102
  2. EPERISONE [Concomitant]
     Active Substance: EPERISONE
     Indication: PRODUCT USED FOR UNKNOWN INDICATION
     Dosage: 100 MG, UNK
     Route: 048
     Dates: end: 20180907
  3. CALCIUM [Concomitant]
     Active Substance: CALCIUM
     Indication: PRODUCT USED FOR UNKNOWN INDICATION
     Dosage: 2 MG, UNK
     Route: 048
     Dates: start: 20181102
  4. REBAMIPIDE [Concomitant]
     Active Substance: REBAMIPIDE
     Indication: PRODUCT USED FOR UNKNOWN INDICATION
     Dosage: 100 MG, UNK
     Route: 048
     Dates: end: 20180907
  5. MAGNESIUM [Concomitant]
     Active Substance: MAGNESIUM
     Indication: PRODUCT USED FOR UNKNOWN INDICATION
     Dosage: 1320 MG, UNK
     Route: 048
     Dates: start: 20160824, end: 20180907
  6. VIVIANT [Concomitant]
     Active Substance: BAZEDOXIFENE
     Indication: PRODUCT USED FOR UNKNOWN INDICATION
     Dosage: 10 MG, UNK
     Route: 048
     Dates: end: 20180907
  7. NEORAL [Suspect]
     Active Substance: CYCLOSPORINE
     Indication: APLASIA PURE RED CELL
     Dosage: 60 MG, UNK
     Route: 048
  8. FLUCONAZOLE. [Concomitant]
     Active Substance: FLUCONAZOLE
     Indication: PRODUCT USED FOR UNKNOWN INDICATION
     Dosage: 200 MG, UNK
     Route: 048
     Dates: start: 20170502

REACTIONS (11)
  - Chills [Unknown]
  - Infective spondylitis [Recovering/Resolving]
  - Back pain [Unknown]
  - Erythema [Recovering/Resolving]
  - Pyrexia [Unknown]
  - Peripheral swelling [Unknown]
  - Cellulitis [Recovered/Resolved]
  - Renal impairment [Recovering/Resolving]
  - Beta haemolytic streptococcal infection [Unknown]
  - Gait disturbance [Recovering/Resolving]
  - Product use in unapproved indication [Unknown]

NARRATIVE: CASE EVENT DATE: 20180823
